FAERS Safety Report 14845024 (Version 1)
Quarter: 2018Q2

REPORT INFORMATION
  Report Type: Report from Study
  Country: US (occurrence: US)
  Receive Date: 20180504
  Receipt Date: 20180504
  Transmission Date: 20180711
  Serious: Yes (Hospitalization, Other)
  Sender: FDA-Public Use
  Company Number: US-BRISTOL-MYERS SQUIBB COMPANY-BMS-2018-039956

PATIENT
  Age: 43 Year
  Sex: Male
  Weight: 28.5 kg

DRUGS (2)
  1. NIVOLUMAB [Suspect]
     Active Substance: NIVOLUMAB
     Indication: TESTIS CANCER
     Dosage: 240 MG, UNK
     Route: 042
     Dates: start: 20180227, end: 20180313
  2. IPILIMUMAB [Suspect]
     Active Substance: IPILIMUMAB
     Indication: TESTIS CANCER
     Dosage: 1 MG/KG, UNK
     Route: 042
     Dates: start: 20180227, end: 20180227

REACTIONS (3)
  - Device related infection [Recovering/Resolving]
  - Anaemia [Recovering/Resolving]
  - Hypocalcaemia [Recovering/Resolving]

NARRATIVE: CASE EVENT DATE: 20180313
